FAERS Safety Report 9780924 (Version 2)
Quarter: 2013Q4

REPORT INFORMATION
  Report Type: Spontaneous
  Country: IT (occurrence: IT)
  Receive Date: 20131224
  Receipt Date: 20131230
  Transmission Date: 20140711
  Serious: Yes (Hospitalization)
  Sender: FDA-Public Use
  Company Number: PHHY2013IT150208

PATIENT
  Age: 57 Year
  Sex: Male

DRUGS (1)
  1. TEGRETOL [Suspect]
     Dosage: 4 DF, TOTAL
     Route: 048
     Dates: start: 20130410, end: 20130410

REACTIONS (2)
  - Vertigo [Recovered/Resolved]
  - Medication error [Recovered/Resolved]
